FAERS Safety Report 5245327-9 (Version None)
Quarter: 2007Q1

REPORT INFORMATION
  Report Type: 
  Country: None (occurrence: None)
  Receive Date: 20070223
  Receipt Date: 20070216
  Transmission Date: 20070707
  Serious: Yes (Other)
  Sender: FDA-Public Use
  Company Number: GB-GLAXOSMITHKLINE-B0459486A

PATIENT
  Age: 42 Year
  Sex: Female

DRUGS (3)
  1. BUPROPION HCL [Suspect]
     Dosage: 150MG VARIABLE DOSE
     Route: 048
     Dates: start: 20070111, end: 20070128
  2. QVAR 40 [Concomitant]
     Indication: ASTHMA
     Route: 055
     Dates: start: 20060106
  3. SALMETEROL [Concomitant]
     Indication: ASTHMA
     Route: 055
     Dates: start: 20061115

REACTIONS (2)
  - ABDOMINAL PAIN [None]
  - URTICARIA GENERALISED [None]
